FAERS Safety Report 22314105 (Version 3)
Quarter: 2023Q2

REPORT INFORMATION
  Report Type: Spontaneous
  Country: CA (occurrence: CA)
  Receive Date: 20230512
  Receipt Date: 20230613
  Transmission Date: 20230721
  Serious: Yes (Other)
  Sender: FDA-Public Use
  Company Number: CA-GLAXOSMITHKLINE-CA2023AMR018252

PATIENT

DRUGS (2)
  1. BENLYSTA [Suspect]
     Active Substance: BELIMUMAB
     Indication: Systemic lupus erythematosus
     Dosage: 200 MG, WE
     Route: 058
  2. BENLYSTA [Suspect]
     Active Substance: BELIMUMAB
     Dosage: 740 MG
     Route: 042
     Dates: start: 20230210

REACTIONS (13)
  - Biliary obstruction [Recovering/Resolving]
  - Fatigue [Recovered/Resolved]
  - Nausea [Recovered/Resolved]
  - Peripheral swelling [Recovering/Resolving]
  - Injection site pain [Unknown]
  - Contusion [Unknown]
  - Swelling [Recovered/Resolved]
  - Pain [Recovering/Resolving]
  - Abdominal distension [Recovering/Resolving]
  - Reflux gastritis [Recovering/Resolving]
  - Migraine with aura [Recovering/Resolving]
  - Abdominal tenderness [Recovered/Resolved]
  - Gastrointestinal infection [Recovered/Resolved]
